FAERS Safety Report 15674513 (Version 1)
Quarter: 2018Q4

REPORT INFORMATION
  Report Type: Spontaneous
  Country: HR (occurrence: HR)
  Receive Date: 20181130
  Receipt Date: 20181130
  Transmission Date: 20190205
  Serious: Yes (Hospitalization, Other)
  Sender: FDA-Public Use
  Company Number: HR-ABBVIE-18S-216-2571333-00

PATIENT
  Sex: Female

DRUGS (4)
  1. NAKOM [Concomitant]
     Active Substance: CARBIDOPA\LEVODOPA
     Indication: PRODUCT USED FOR UNKNOWN INDICATION
     Dosage: 0.5 TABLET AFTER MORNING GETTING UP
     Route: 048
  2. NAKOM [Concomitant]
     Active Substance: CARBIDOPA\LEVODOPA
     Dosage: 6-7 TABLETS PER DAY
     Route: 048
  3. NAKOM [Concomitant]
     Active Substance: CARBIDOPA\LEVODOPA
     Dosage: 2 TABLETS
     Route: 048
  4. DUODOPA [Suspect]
     Active Substance: CARBIDOPA\LEVODOPA
     Indication: PARKINSON^S DISEASE
     Dosage: MD 9ML/H CONSTANT 2,6ML/H BOLUS OF 1 ML/H
     Route: 050
     Dates: start: 20170403

REACTIONS (5)
  - Urinary tract infection [Recovered/Resolved]
  - Aggression [Unknown]
  - Decubitus ulcer [Not Recovered/Not Resolved]
  - Hallucination [Recovered/Resolved]
  - Cachexia [Unknown]

NARRATIVE: CASE EVENT DATE: 201803
